FAERS Safety Report 9850829 (Version 1)
Quarter: 2013Q4

REPORT INFORMATION
  Report Type: Spontaneous
  Country: US (occurrence: None)
  Receive Date: 20131226
  Receipt Date: 20131226
  Transmission Date: 20140711
  Serious: Yes (Other)
  Sender: FDA-Public Use
  Company Number: PHEH2013US007790

PATIENT
  Age: 47 Year
  Sex: Female

DRUGS (8)
  1. COMBIPATCH [Suspect]
     Indication: MENOPAUSAL SYMPTOMS
     Route: 062
     Dates: start: 20130227, end: 20130319
  2. AMBIEN (ZOLPIDEM TARTRATE) [Concomitant]
  3. EXCEDRIN (CAFFEINE, PARACETAMOL) [Concomitant]
  4. ZYRTEC-D (CETIRIZINE HYDROCHLORIDE, PSEUDOEPHEDRINE HYDROCHLORIDE) [Concomitant]
  5. BENZONATATE (BENZONATATE) [Concomitant]
  6. CYCLOBENZAPRINE (CYCLOBENZAPRINE) [Concomitant]
  7. FLUTICASONE (FLUTICASONE) NASAL SPRAY, 50 MG [Concomitant]
  8. MULTIVITAMINS (ASCORBIC ACID, ERGOCALCIFEROL, FOLIC ACID, NICOTINAMIDE, PANTHENOL, RETINOL, RIBOFLAVIN, THIAMINE HYDROCHLORIDE) [Concomitant]

REACTIONS (3)
  - Migraine [None]
  - Headache [None]
  - Asthenia [None]
